FAERS Safety Report 24839536 (Version 1)
Quarter: 2025Q1

REPORT INFORMATION
  Report Type: Spontaneous
  Country: CN (occurrence: CN)
  Receive Date: 20250114
  Receipt Date: 20250114
  Transmission Date: 20250409
  Serious: Yes (Other)
  Sender: GILEAD
  Company Number: CN-GILEAD-2025-0699290

PATIENT
  Age: 49 Year
  Sex: Female
  Weight: 65 kg

DRUGS (1)
  1. TRODELVY [Suspect]
     Active Substance: SACITUZUMAB GOVITECAN-HZIY
     Indication: Breast cancer
     Dosage: 540 MG, Q3WK
     Route: 041
     Dates: start: 20241125, end: 20241125

REACTIONS (1)
  - Myelosuppression [Recovering/Resolving]

NARRATIVE: CASE EVENT DATE: 20241203
